FAERS Safety Report 6955709-2 (Version None)
Quarter: 2010Q3

REPORT INFORMATION
  Report Type: 
  Country: None (occurrence: None)
  Receive Date: 20100826
  Receipt Date: 20100826
  Transmission Date: 20110219
  Serious: Yes (Other)
  Sender: FDA-Public Use
  Company Number: None

PATIENT
  Sex: Male

DRUGS (1)
  1. FENTANYL [Suspect]
     Indication: PAIN
     Dosage: ONE PATCH EVERY 72 HOURS TRANSDERMAL
     Route: 062
     Dates: start: 20100712, end: 20100825

REACTIONS (4)
  - INADEQUATE ANALGESIA [None]
  - INSOMNIA [None]
  - PRODUCT MEASURED POTENCY ISSUE [None]
  - RASH [None]
